FAERS Safety Report 6309969-1 (Version None)
Quarter: 2009Q3

REPORT INFORMATION
  Report Type: 
  Country: None (occurrence: None)
  Receive Date: 20090814
  Receipt Date: 20090729
  Transmission Date: 20100115
  Serious: Yes (Hospitalization)
  Sender: FDA-Public Use
  Company Number: DE-VALEANT-2009VX001364

PATIENT
  Age: 72 Year
  Sex: Female

DRUGS (1)
  1. TASMAR [Suspect]
     Indication: PARKINSON'S DISEASE
     Route: 065

REACTIONS (2)
  - NERVOUS SYSTEM DISORDER [None]
  - RESPIRATORY ARREST [None]
